FAERS Safety Report 8544905-9 (Version None)
Quarter: 2012Q3

REPORT INFORMATION
  Report Type: 
  Country: None (occurrence: None)
  Receive Date: 20120727
  Receipt Date: 20120718
  Transmission Date: 20120928
  Serious: Yes (Hospitalization)
  Sender: FDA-Public Use
  Company Number: US-JNJFOC-20120710195

PATIENT
  Sex: Female
  Weight: 101.15 kg

DRUGS (2)
  1. REMICADE [Suspect]
     Indication: ARTHRITIS
     Route: 042
     Dates: start: 20120601
  2. REMICADE [Suspect]
     Route: 042
     Dates: start: 20120706, end: 20120706

REACTIONS (6)
  - NAUSEA [None]
  - RASH [None]
  - FEELING ABNORMAL [None]
  - LOSS OF CONSCIOUSNESS [None]
  - INFUSION RELATED REACTION [None]
  - VOMITING [None]
